FAERS Safety Report 8584691-X (Version None)
Quarter: 2012Q3

REPORT INFORMATION
  Report Type: 
  Country: None (occurrence: None)
  Receive Date: 20120810
  Receipt Date: 20120803
  Transmission Date: 20120928
  Serious: Yes (Death, Hospitalization, Other)
  Sender: FDA-Public Use
  Company Number: US-SANOFI-AVENTIS-2012SA056027

PATIENT
  Age: 78 Year
  Sex: Male

DRUGS (2)
  1. LANTUS [Suspect]
     Route: 058
     Dates: end: 20120616
  2. SOLOSTAR [Suspect]
     Dates: end: 20120616

REACTIONS (3)
  - SEPTIC SHOCK [None]
  - TOE AMPUTATION [None]
  - IMPAIRED GASTRIC EMPTYING [None]
